FAERS Safety Report 8861295 (Version 1)
Quarter: 2012Q4

REPORT INFORMATION
  Report Type: Spontaneous
  Country: US (occurrence: None)
  Receive Date: 20121023
  Receipt Date: 20121023
  Transmission Date: 20130627
  Serious: Yes (Death)
  Sender: FDA-Public Use
  Company Number: 2012MA012273

PATIENT
  Age: 48 Year
  Sex: Male

DRUGS (5)
  1. OXYCODONE HCL [Suspect]
  2. ALPRAZOLAM [Suspect]
  3. DIPHENHYDRAMINE [Suspect]
  4. IBUPROFEN [Suspect]
  5. COTININE [Suspect]

REACTIONS (5)
  - Unresponsive to stimuli [None]
  - Asphyxia [None]
  - Obstructive airways disorder [None]
  - Toxicity to various agents [None]
  - Accidental overdose [None]
